FAERS Safety Report 5808858-6 (Version None)
Quarter: 2008Q3

REPORT INFORMATION
  Report Type: 
  Country: None (occurrence: None)
  Receive Date: 20080714
  Receipt Date: 20080707
  Transmission Date: 20090109
  Serious: Yes (Hospitalization)
  Sender: FDA-Public Use
  Company Number: US-AVENTIS-200814130US

PATIENT
  Sex: Female

DRUGS (2)
  1. LANTUS [Suspect]
     Dates: start: 20070101
  2. OPTICLIK GREY [Suspect]
     Dates: start: 20070101

REACTIONS (2)
  - BLOOD CALCIUM DECREASED [None]
  - BLOOD GLUCOSE DECREASED [None]
